FAERS Safety Report 5870710-8 (Version None)
Quarter: 2008Q3

REPORT INFORMATION
  Report Type: 
  Country: None (occurrence: None)
  Receive Date: 20080904
  Receipt Date: 20080904
  Transmission Date: 20090109
  Serious: Yes (Hospitalization)
  Sender: FDA-Public Use
  Company Number: PHEH1996US07536

PATIENT
  Sex: Female
  Weight: 56.5 kg

DRUGS (11)
  1. NEORAL [Suspect]
     Route: 048
     Dates: start: 19940914
  2. NEORAL [Interacting]
     Route: 048
     Dates: start: 19950607
  3. SANDIMMUNE VERSUS NEORAL [Interacting]
  4. PREDNISONE [Interacting]
     Route: 065
  5. SEPTRA [Interacting]
     Route: 065
  6. PROCARDIA [Interacting]
  7. ZANTAC [Interacting]
  8. DIFLUCAN [Interacting]
  9. TRIMETHOPRIM [Interacting]
  10. TICARCILLIN + CLAVULANATE (CLAVENTIN) [Interacting]
  11. AMOXICILLIN + CLAVULANATE (AMOXICILLIN W/CLAVULANATE POTASSIUM) [Interacting]

REACTIONS (2)
  - DRUG INTERACTION [None]
  - NEPHROPATHY TOXIC [None]
